FAERS Safety Report 19141863 (Version 3)
Quarter: 2021Q2

REPORT INFORMATION
  Report Type: Spontaneous
  Country: US (occurrence: US)
  Receive Date: 20210415
  Receipt Date: 20210610
  Transmission Date: 20210717
  Serious: No
  Sender: FDA-Public Use
  Company Number: US-GALDERMA-US2021008054

PATIENT
  Age: 37 Year
  Sex: Female

DRUGS (2)
  1. AKLIEF [Suspect]
     Active Substance: TRIFAROTENE
     Indication: ACNE
     Dosage: 0.005%
     Route: 061
     Dates: start: 202010, end: 20210328
  2. AKLIEF [Suspect]
     Active Substance: TRIFAROTENE
     Dosage: 0.005%
     Route: 061
     Dates: start: 20210331

REACTIONS (1)
  - Rash papular [Recovering/Resolving]

NARRATIVE: CASE EVENT DATE: 20210329
